FAERS Safety Report 23160055 (Version 1)
Quarter: 2023Q4

REPORT INFORMATION
  Report Type: Spontaneous
  Country: FR (occurrence: FR)
  Receive Date: 20231108
  Receipt Date: 20231108
  Transmission Date: 20240110
  Serious: Yes (Hospitalization)
  Sender: FDA-Public Use
  Company Number: FR-009507513-2310FRA008972

PATIENT
  Age: 71 Year
  Sex: Male

DRUGS (6)
  1. CARBOPLATIN [Suspect]
     Active Substance: CARBOPLATIN
     Indication: Gastrointestinal cancer metastatic
     Dosage: UNK
     Route: 065
     Dates: start: 20230901
  2. CARBOPLATIN [Suspect]
     Active Substance: CARBOPLATIN
     Indication: Cardiac neoplasm malignant
  3. FLUOROURACIL [Suspect]
     Active Substance: FLUOROURACIL
     Indication: Gastrointestinal cancer metastatic
     Dosage: UNK
     Route: 065
     Dates: start: 20230901, end: 2023
  4. FLUOROURACIL [Suspect]
     Active Substance: FLUOROURACIL
     Indication: Cardiac neoplasm malignant
  5. KEYTRUDA [Suspect]
     Active Substance: PEMBROLIZUMAB
     Indication: Gastrointestinal cancer metastatic
     Dosage: UNK
     Route: 065
     Dates: start: 20230901, end: 2023
  6. KEYTRUDA [Suspect]
     Active Substance: PEMBROLIZUMAB
     Indication: Cardiac neoplasm malignant

REACTIONS (3)
  - Myositis [Unknown]
  - Rash [Unknown]
  - Product use in unapproved indication [Unknown]

NARRATIVE: CASE EVENT DATE: 20230901
